FAERS Safety Report 7389567-1 (Version None)
Quarter: 2011Q2

REPORT INFORMATION
  Report Type: 
  Country: None (occurrence: None)
  Receive Date: 20110401
  Receipt Date: 20110318
  Transmission Date: 20111010
  Serious: Yes (Hospitalization, Other)
  Sender: FDA-Public Use
  Company Number: PHHY2011JP18332

PATIENT
  Age: 88 Year
  Sex: Female

DRUGS (3)
  1. TAKEPRON [Suspect]
     Dosage: 15 MG, DAILY
     Route: 048
     Dates: start: 20110224, end: 20110303
  2. MINOCYCLINE HYDROCHLORIDE [Concomitant]
     Dosage: 100 MG, DAILY
     Route: 042
     Dates: start: 20110224, end: 20110303
  3. DIOVAN [Suspect]
     Route: 048

REACTIONS (2)
  - PNEUMONIA [None]
  - RESPIRATORY DISORDER [None]
